FAERS Safety Report 16384112 (Version 1)
Quarter: 2019Q3

REPORT INFORMATION
  Report Type: Spontaneous
  Country: US (occurrence: US)
  Receive Date: 20190531
  Receipt Date: 20190531
  Transmission Date: 20191004
  Serious: Yes (Disabling)
  Sender: FDA-Public Use
  Company Number: None

PATIENT
  Age: 38 Year
  Sex: Female
  Weight: 105.3 kg

DRUGS (1)
  1. EXCEDRIN EXTRA STRENGTH CAPLETS [Suspect]
     Active Substance: ACETAMINOPHEN\ASPIRIN\CAFFEINE
     Indication: HEADACHE
     Dosage: ?          QUANTITY:2 CAPSULE(S);?
     Route: 048
     Dates: start: 20190530, end: 20190530

REACTIONS (8)
  - Irritability [None]
  - Nausea [None]
  - Dizziness [None]
  - Dysphonia [None]
  - Asthenia [None]
  - Back pain [None]
  - Swelling [None]
  - Eye swelling [None]

NARRATIVE: CASE EVENT DATE: 20190530
